FAERS Safety Report 8547952-6 (Version None)
Quarter: 2012Q3

REPORT INFORMATION
  Report Type: 
  Country: None (occurrence: None)
  Receive Date: 20120729
  Receipt Date: 20120718
  Transmission Date: 20120928
  Serious: Yes (Hospitalization)
  Sender: FDA-Public Use
  Company Number: IT-TEVA-347045ISR

PATIENT
  Sex: Female

DRUGS (5)
  1. CANDESARTAN CILEXETIL [Concomitant]
     Indication: HYPERTENSION
  2. ASPIRIN [Concomitant]
     Indication: HYPERTENSION
  3. OXCARBAZEPINE [Suspect]
     Route: 048
     Dates: start: 20120623, end: 20120623
  4. ZYPREXA [Suspect]
     Indication: SCHIZOAFFECTIVE DISORDER
     Dosage: 20 MILLIGRAM;
     Route: 048
     Dates: start: 20090101, end: 20120623
  5. CARBOLITHIUM CEPHALON [Suspect]
     Route: 048
     Dates: start: 20120623, end: 20120623

REACTIONS (6)
  - ELECTROCARDIOGRAM QT PROLONGED [None]
  - DIPLOPIA [None]
  - TOXICITY TO VARIOUS AGENTS [None]
  - ESSENTIAL THROMBOCYTHAEMIA [None]
  - TREMOR [None]
  - MEDICATION ERROR [None]
